FAERS Safety Report 24595990 (Version 3)
Quarter: 2025Q3

REPORT INFORMATION
  Report Type: Spontaneous
  Country: GB (occurrence: GB)
  Receive Date: 20241109
  Receipt Date: 20250809
  Transmission Date: 20251020
  Serious: Yes (Other)
  Sender: ALEXION PHARMACEUTICALS
  Company Number: GB-MHRA-31752785

PATIENT
  Age: 78 Year
  Sex: Male

DRUGS (4)
  1. CRESTOR [Suspect]
     Active Substance: ROSUVASTATIN CALCIUM
     Dosage: AT FIRST EVERY OTHER DAY
     Dates: start: 201103
  2. ROSUVASTATIN [Suspect]
     Active Substance: ROSUVASTATIN
     Route: 065
  3. UNSPECIFIED INGREDIENT [Concomitant]
     Active Substance: UNSPECIFIED INGREDIENT
     Indication: Ocular discomfort
  4. VIAGRA [Concomitant]
     Active Substance: SILDENAFIL CITRATE
     Indication: Erectile dysfunction
     Dosage: 25 MILLIGRAM, QD
     Route: 065
     Dates: start: 1999

REACTIONS (4)
  - Muscle spasms [Not Recovered/Not Resolved]
  - Sleep apnoea syndrome [Not Recovered/Not Resolved]
  - Musculoskeletal stiffness [Unknown]
  - Drug interaction [Unknown]

NARRATIVE: CASE EVENT DATE: 20120101
